FAERS Safety Report 5506403-6 (Version None)
Quarter: 2007Q4

REPORT INFORMATION
  Report Type: 
  Country: None (occurrence: None)
  Receive Date: 20071101
  Receipt Date: 20071101
  Transmission Date: 20080405
  Serious: Yes (Life-Threatening, Hospitalization)
  Sender: FDA-Public Use
  Company Number: None

PATIENT
  Sex: Female
  Weight: 68.9467 kg

DRUGS (1)
  1. YAZ [Suspect]
     Indication: CONTRACEPTION
     Dosage: 1 TAB QD PO
     Route: 048
     Dates: start: 20070601, end: 20071030

REACTIONS (3)
  - HEMIPARESIS [None]
  - INTRACRANIAL VENOUS SINUS THROMBOSIS [None]
  - STATUS EPILEPTICUS [None]
